FAERS Safety Report 23578210 (Version 1)
Quarter: 2024Q1

REPORT INFORMATION
  Report Type: Spontaneous
  Country: US (occurrence: US)
  Receive Date: 20240229
  Receipt Date: 20240229
  Transmission Date: 20240410
  Serious: No
  Sender: FDA-Public Use
  Company Number: US-PADAGIS-2024PAD00259

PATIENT

DRUGS (1)
  1. EVAMIST [Suspect]
     Active Substance: ESTRADIOL
     Indication: Hormone replacement therapy
     Dosage: UNK,  TWO SPRAYS AND EXTENT UP TO 3 SPRAY
     Route: 065

REACTIONS (3)
  - Hot flush [Unknown]
  - Nipple pain [Unknown]
  - Insomnia [Unknown]

NARRATIVE: CASE EVENT DATE: 20240201
